FAERS Safety Report 10755345 (Version 1)
Quarter: 2015Q1

REPORT INFORMATION
  Report Type: Spontaneous
  Country: US (occurrence: US)
  Receive Date: 20150202
  Receipt Date: 20150202
  Transmission Date: 20150721
  Serious: No
  Sender: FDA-Public Use
  Company Number: US-BAYER-2015-014536

PATIENT
  Sex: Male

DRUGS (3)
  1. COLCHICINE. [Suspect]
     Active Substance: COLCHICINE
  2. ALEVE [Suspect]
     Active Substance: NAPROXEN SODIUM
  3. LEVEMIR [Suspect]
     Active Substance: INSULIN DETEMIR

REACTIONS (1)
  - Diarrhoea [Unknown]
